FAERS Safety Report 8217777 (Version 6)
Quarter: 2014Q3

REPORT INFORMATION
  Report Type: Report from Study
  Country: DE (occurrence: DE)
  Receive Date: 20111101
  Receipt Date: 20140730
  Transmission Date: 20150326
  Serious: Yes (Hospitalization)
  Sender: FDA-Public Use
  Company Number: DE-GLAXOSMITHKLINE-B0756104A

PATIENT
  Age: 67 Year
  Sex: Female
  Weight: 65.8 kg

DRUGS (2)
  1. TOPOTECAN [Suspect]
     Active Substance: TOPOTECAN\TOPOTECAN HYDROCHLORIDE
     Indication: OVARIAN CANCER
     Dosage: 2.3MG PER DAY
     Route: 042
     Dates: start: 20110912
  2. BLINDED STUDY MEDICATION [Suspect]
     Active Substance: UNSPECIFIED INGREDIENT
     Indication: OVARIAN CANCER
     Dosage: 800MG PER DAY
     Route: 048
     Dates: start: 20110919

REACTIONS (2)
  - Decreased appetite [Recovered/Resolved]
  - Fatigue [Recovered/Resolved]

NARRATIVE: CASE EVENT DATE: 20111021
